FAERS Safety Report 7291879-7 (Version None)
Quarter: 2011Q1

REPORT INFORMATION
  Report Type: 
  Country: None (occurrence: None)
  Receive Date: 20110214
  Receipt Date: 20110207
  Transmission Date: 20110831
  Serious: Yes (Other)
  Sender: FDA-Public Use
  Company Number: US-US-EMD SERONO, INC.-7010604

PATIENT
  Sex: Female

DRUGS (13)
  1. REBIF [Suspect]
     Route: 058
     Dates: start: 20100701, end: 20100101
  2. AMBIEN [Concomitant]
     Indication: INSOMNIA
  3. OMEPRAZOLE [Concomitant]
  4. AMITRIPTYLINE [Concomitant]
     Indication: PAIN
  5. REBIF [Suspect]
     Route: 058
     Dates: start: 20100101, end: 20101116
  6. VICODIN [Concomitant]
     Indication: PAIN
  7. REBIF [Suspect]
     Route: 058
     Dates: start: 20100101, end: 20100101
  8. CELEXA [Concomitant]
     Indication: DEPRESSION
  9. UNSPECIFIED MEDICATION [Concomitant]
     Indication: PREMEDICATION
  10. AMITRIPTYLINE [Concomitant]
  11. CRESTOR [Concomitant]
  12. REBIF [Suspect]
     Indication: MULTIPLE SCLEROSIS
     Route: 058
     Dates: start: 20100616, end: 20100101
  13. REBIF [Suspect]
     Route: 058
     Dates: start: 20100101, end: 20101201

REACTIONS (5)
  - SUICIDAL IDEATION [None]
  - STRESS [None]
  - FEELING ABNORMAL [None]
  - DEPRESSION [None]
  - INJECTION SITE ERYTHEMA [None]
